FAERS Safety Report 4678473-9 (Version None)
Quarter: 2005Q2

REPORT INFORMATION
  Report Type: 
  Country: None (occurrence: None)
  Receive Date: 20050601
  Receipt Date: 20050308
  Transmission Date: 20051028
  Serious: Yes (Other)
  Sender: FDA-Public Use
  Company Number: GB-ROCHE-397738

PATIENT
  Age: 3 Year
  Sex: Female
  Weight: 27 kg

DRUGS (1)
  1. XENICAL [Suspect]
     Indication: OBESITY
     Route: 048
     Dates: start: 20050223, end: 20050224

REACTIONS (1)
  - RECTAL HAEMORRHAGE [None]
